FAERS Safety Report 4641677-5 (Version None)
Quarter: 2005Q2

REPORT INFORMATION
  Report Type: 
  Country: None (occurrence: None)
  Receive Date: 20050421
  Receipt Date: 20050412
  Transmission Date: 20051028
  Serious: Yes (Death)
  Sender: FDA-Public Use
  Company Number: 163-20785-05030276

PATIENT
  Age: 79 Year
  Sex: Female

DRUGS (1)
  1. THALOMID [Suspect]
     Indication: MYELODYSPLASTIC SYNDROME
     Dosage: 50-200MG, DAILY, ORAL
     Route: 048
     Dates: start: 20040501, end: 20041101

REACTIONS (5)
  - ACUTE LEUKAEMIA [None]
  - DISEASE PROGRESSION [None]
  - HYPOTENSION [None]
  - MYELODYSPLASTIC SYNDROME [None]
  - TOOTH INFECTION [None]
